FAERS Safety Report 9278153 (Version 1)
Quarter: 2013Q2

REPORT INFORMATION
  Report Type: Spontaneous
  Country: US (occurrence: None)
  Receive Date: 20130503
  Receipt Date: 20130503
  Transmission Date: 20140414
  Serious: Yes (Other)
  Sender: FDA-Public Use
  Company Number: None

PATIENT
  Sex: Female

DRUGS (2)
  1. MEANINGFUL BEAUTY ANITOXIDANT DAY CREME WITH SPF 20 [Suspect]
     Indication: THERAPEUTIC SKIN CARE TOPICAL
     Dosage: DAILY, SKIN CARE?7 DAYS
     Route: 061
  2. MEANINGFUL BEAUTY ANITOXIDANT DAY CREME WITH SPF 20 [Suspect]
     Indication: PHOTOSENSITIVITY REACTION
     Dosage: DAILY, SKIN CARE?7 DAYS
     Route: 061

REACTIONS (4)
  - Erythema [None]
  - Pruritus [None]
  - Dry skin [None]
  - Staphylococcal infection [None]
